FAERS Safety Report 10672077 (Version 1)
Quarter: 2014Q4

REPORT INFORMATION
  Report Type: Spontaneous
  Country: JP (occurrence: JP)
  Receive Date: 20141223
  Receipt Date: 20141223
  Transmission Date: 20150529
  Serious: Yes (Hospitalization)
  Sender: FDA-Public Use
  Company Number: JP-SA-2014SA174792

PATIENT
  Age: 63 Year
  Sex: Male

DRUGS (36)
  1. CLOSTRIDIUM BUTYRICUM [Concomitant]
     Active Substance: CLOSTRIDIUM BUTYRICUM SPORES STRAIN M-55
     Dates: start: 20130530, end: 20130605
  2. CLOPIDOGREL BISULFATE. [Suspect]
     Active Substance: CLOPIDOGREL BISULFATE
     Route: 065
  3. CRAVIT [Concomitant]
     Active Substance: LEVOFLOXACIN
     Dates: start: 20141120, end: 20141125
  4. PREGABALIN. [Concomitant]
     Active Substance: PREGABALIN
     Dates: start: 20110804, end: 20140131
  5. FUROSEMIDE. [Concomitant]
     Active Substance: FUROSEMIDE
     Dates: start: 20140208
  6. ASPIRIN. [Concomitant]
     Active Substance: ASPIRIN
     Dates: start: 20110315
  7. CARBOCISTEINE [Concomitant]
     Active Substance: CARBOCYSTEINE
     Dates: start: 20121101, end: 20121108
  8. PABRON /00520201/ [Concomitant]
     Dates: start: 20141119, end: 20141119
  9. AMITRIPTYLINE HYDROCHLORIDE. [Concomitant]
     Active Substance: AMITRIPTYLINE HYDROCHLORIDE
     Dates: start: 20110822
  10. OLMESARTAN MEDOXOMIL. [Concomitant]
     Active Substance: OLMESARTAN MEDOXOMIL
     Dates: start: 20120312, end: 20140131
  11. OLMESARTAN MEDOXOMIL. [Concomitant]
     Active Substance: OLMESARTAN MEDOXOMIL
     Dates: start: 20140321
  12. CARBOHYDRATES NOS/SODIUM LACTATE/SODIUM CHLORIDE/POTASSIUM CHLORIDE [Concomitant]
     Dates: start: 20140129, end: 20140206
  13. GLUCOSE [Concomitant]
     Active Substance: DEXTROSE
     Dates: start: 20140205, end: 20140206
  14. FUROSEMIDE. [Concomitant]
     Active Substance: FUROSEMIDE
     Dates: start: 20130401, end: 20140131
  15. CRAVIT [Concomitant]
     Active Substance: LEVOFLOXACIN
     Dates: start: 20130401, end: 20130407
  16. SODIUM GUALENATE [Concomitant]
     Active Substance: SODIUM GUALENATE
     Dates: start: 20141121, end: 20141125
  17. PLAVIX [Concomitant]
     Active Substance: CLOPIDOGREL BISULFATE
     Dates: start: 1994
  18. TRIMETHOPRIM/SULFAMETHOXAZOLE [Concomitant]
     Dates: start: 20140131, end: 20140310
  19. SOL-MELCORT [Concomitant]
     Active Substance: METHYLPREDNISOLONE SODIUM SUCCINATE
     Route: 042
     Dates: start: 20140130, end: 20140206
  20. PREDNISOLONE. [Concomitant]
     Active Substance: PREDNISOLONE
     Dates: start: 20140207, end: 20140218
  21. CRAVIT [Concomitant]
     Active Substance: LEVOFLOXACIN
     Dates: start: 20130418, end: 20130424
  22. CRAVIT [Concomitant]
     Active Substance: LEVOFLOXACIN
     Dates: start: 20140129, end: 20140203
  23. CRAVIT [Concomitant]
     Active Substance: LEVOFLOXACIN
     Dates: start: 20140204, end: 20140210
  24. DEQUALINIUM CHLORIDE [Concomitant]
     Active Substance: DEQUALINIUM CHLORIDE
     Dates: start: 20141121, end: 20141125
  25. PARIET [Concomitant]
     Active Substance: RABEPRAZOLE SODIUM
     Dates: start: 20110318
  26. ACETAMINOPHEN. [Concomitant]
     Active Substance: ACETAMINOPHEN
     Dates: start: 20110302, end: 20140131
  27. OSELTAMIVIR [Concomitant]
     Active Substance: OSELTAMIVIR
     Dates: start: 20140129, end: 20140130
  28. LENALIDOMIDE [Concomitant]
     Active Substance: LENALIDOMIDE
     Route: 048
     Dates: start: 20120517
  29. NIFEDIPINE. [Concomitant]
     Active Substance: NIFEDIPINE
     Dates: start: 20110315
  30. OLMESARTAN MEDOXOMIL. [Concomitant]
     Active Substance: OLMESARTAN MEDOXOMIL
     Dates: start: 20140204, end: 20140207
  31. AMBROXOL HYDROCHLORIDE [Concomitant]
     Active Substance: AMBROXOL HYDROCHLORIDE
     Dates: start: 20121101, end: 20121108
  32. AMBROXOL HYDROCHLORIDE [Concomitant]
     Active Substance: AMBROXOL HYDROCHLORIDE
     Dates: start: 20130401, end: 20130515
  33. PILSICAINIDE HYDROCHLORIDE [Concomitant]
     Active Substance: PILSICAINIDE HYDROCHLORIDE
     Dates: start: 20140205, end: 20140205
  34. FUROSEMIDE. [Concomitant]
     Active Substance: FUROSEMIDE
     Dates: start: 20140206, end: 20140207
  35. ALL OTHER THERAPEUTIC PRODUCTS [Concomitant]
     Active Substance: UNSPECIFIED INGREDIENT
     Dates: start: 20140130, end: 20140203
  36. DEXAMETHASONE. [Concomitant]
     Active Substance: DEXAMETHASONE
     Route: 048
     Dates: start: 20120517

REACTIONS (1)
  - Pneumonia influenzal [Recovered/Resolved]

NARRATIVE: CASE EVENT DATE: 20140129
